FAERS Safety Report 4844176-0 (Version None)
Quarter: 2005Q4

REPORT INFORMATION
  Report Type: 
  Country: None (occurrence: None)
  Receive Date: 20051202
  Receipt Date: 20051123
  Transmission Date: 20060501
  Serious: Yes (Hospitalization)
  Sender: FDA-Public Use
  Company Number: PHRM2005FR03017

PATIENT
  Age: 63 Year
  Sex: Female

DRUGS (4)
  1. FEMARA [Suspect]
     Indication: BREAST CANCER METASTATIC
     Dosage: 2.5 MG, QD
     Route: 048
     Dates: start: 20030213
  2. CODOLIPRANE [Concomitant]
     Dosage: 6 DF PER DAY
  3. LYTOS [Concomitant]
     Dosage: 1040 MG PER DAY
     Route: 048
  4. NEURONTIN [Concomitant]
     Dosage: 600 MG PER DAY
     Route: 048

REACTIONS (4)
  - ARTHRALGIA [None]
  - BONE PAIN [None]
  - SHOULDER PAIN [None]
  - TENDONITIS [None]
